FAERS Safety Report 9110973 (Version 2)
Quarter: 2014Q1

REPORT INFORMATION
  Report Type: Spontaneous
  Country: US (occurrence: US)
  Receive Date: 20130219
  Receipt Date: 20140213
  Transmission Date: 20141002
  Serious: No
  Sender: FDA-Public Use
  Company Number: US-BRISTOL-MYERS SQUIBB COMPANY-16374001

PATIENT
  Age: 67 Year
  Sex: Male
  Weight: 113 kg

DRUGS (7)
  1. ABATACEPT SUBQ INJECTION 125MG/ML [Suspect]
     Indication: RHEUMATOID ARTHRITIS
     Dosage: STARTED MEDICATION 14 MONTHS AGO?LAST INJECTION ON 4APR2013.
     Route: 058
     Dates: start: 20120119
  2. METHOTREXATE [Concomitant]
  3. SULFASALAZINE [Concomitant]
  4. PREDNISONE [Concomitant]
  5. FOLIC ACID [Concomitant]
  6. SPIRONOLACTONE [Concomitant]
  7. LASIX [Concomitant]

REACTIONS (2)
  - Injection site bruising [Not Recovered/Not Resolved]
  - Drug ineffective [Unknown]
